FAERS Safety Report 21129010 (Version 1)
Quarter: 2022Q3

REPORT INFORMATION
  Report Type: Spontaneous
  Country: US (occurrence: None)
  Receive Date: 20220725
  Receipt Date: 20220725
  Transmission Date: 20221027
  Serious: Yes (Other)
  Sender: FDA-Public Use
  Company Number: US-ROCHE-3146009

PATIENT

DRUGS (4)
  1. ERIVEDGE [Suspect]
     Active Substance: VISMODEGIB
     Indication: Adenocarcinoma metastatic
     Dosage: ONGOING: YES
     Route: 065
     Dates: start: 201903, end: 201905
  2. ERIVEDGE [Suspect]
     Active Substance: VISMODEGIB
     Route: 065
     Dates: start: 201910
  3. VINCRISTINE [Concomitant]
     Active Substance: VINCRISTINE
  4. CYCLOPHOSPHAMIDE [Concomitant]
     Active Substance: CYCLOPHOSPHAMIDE

REACTIONS (3)
  - Muscle spasms [Unknown]
  - Disease progression [Unknown]
  - Aspiration [Unknown]

NARRATIVE: CASE EVENT DATE: 20190901
